FAERS Safety Report 22399908 (Version 1)
Quarter: 2023Q2

REPORT INFORMATION
  Report Type: Spontaneous
  Country: US (occurrence: US)
  Receive Date: 20230602
  Receipt Date: 20230602
  Transmission Date: 20230721
  Serious: Yes (Life-Threatening, Hospitalization, Other)
  Sender: FDA-Public Use
  Company Number: US-MLMSERVICE-20230522-4297387-1

PATIENT
  Age: 56 Year
  Sex: Male

DRUGS (2)
  1. IBUPROFEN [Suspect]
     Active Substance: IBUPROFEN
     Indication: Back pain
     Dosage: 200 TO 800 MG, PRN
     Route: 048
  2. IBUPROFEN [Suspect]
     Active Substance: IBUPROFEN
     Dosage: 400 MG, SINGLE
     Route: 048

REACTIONS (7)
  - Cardiac arrest [Recovering/Resolving]
  - Kounis syndrome [Recovering/Resolving]
  - Anaphylactic reaction [Recovering/Resolving]
  - Posturing [Recovering/Resolving]
  - Angioedema [Recovering/Resolving]
  - Respiratory distress [Recovering/Resolving]
  - Urticaria [Recovering/Resolving]
